FAERS Safety Report 7045597-0 (Version None)
Quarter: 2010Q4

REPORT INFORMATION
  Report Type: 
  Country: None (occurrence: None)
  Receive Date: 20101014
  Receipt Date: 20101006
  Transmission Date: 20110411
  Serious: Yes (Hospitalization)
  Sender: FDA-Public Use
  Company Number: SE-JNJFOC-20101001892

PATIENT
  Age: 21 Year

DRUGS (4)
  1. REMICADE [Suspect]
     Indication: CROHN'S DISEASE
     Route: 042
  2. ENTOCORT EC [Concomitant]
  3. BEHEPAN [Concomitant]
  4. KALCIPOS-D [Concomitant]

REACTIONS (1)
  - APPENDICITIS [None]
